FAERS Safety Report 9848643 (Version 1)
Quarter: 2014Q1

REPORT INFORMATION
  Report Type: Spontaneous
  Country: US (occurrence: None)
  Receive Date: 20140124
  Receipt Date: 20140124
  Transmission Date: 20141002
  Serious: Yes (Other)
  Sender: FDA-Public Use
  Company Number: None

PATIENT
  Age: 25 Year
  Sex: Male
  Weight: 86.18 kg

DRUGS (2)
  1. BUPROPION XL [Suspect]
     Indication: BIPOLAR I DISORDER
     Dosage: 200 MGXL QDAY PO
     Route: 048
     Dates: start: 200312, end: 200808
  2. BUPROPION XL [Suspect]
     Indication: DEPRESSION
     Dosage: 200 MGXL QDAY PO
     Route: 048
     Dates: start: 200312, end: 200808

REACTIONS (3)
  - Depression [None]
  - Drug ineffective [None]
  - Product substitution issue [None]
